FAERS Safety Report 13611182 (Version 2)
Quarter: 2017Q3

REPORT INFORMATION
  Report Type: Report from Study
  Country: US (occurrence: US)
  Receive Date: 20170605
  Receipt Date: 20170704
  Transmission Date: 20171127
  Serious: Yes (Disabling, Other)
  Sender: FDA-Public Use
  Company Number: PHEH2017US016582

PATIENT
  Sex: Male

DRUGS (8)
  1. ADVAIR HFA [Concomitant]
     Active Substance: FLUTICASONE PROPIONATE\SALMETEROL XINAFOATE
     Indication: PRODUCT USED FOR UNKNOWN INDICATION
     Route: 065
  2. METOPROLOL. [Concomitant]
     Active Substance: METOPROLOL
     Indication: PRODUCT USED FOR UNKNOWN INDICATION
     Route: 065
  3. AMLODIPINE [Concomitant]
     Active Substance: AMLODIPINE BESYLATE
     Indication: PRODUCT USED FOR UNKNOWN INDICATION
     Route: 065
  4. VOTRIENT [Suspect]
     Active Substance: PAZOPANIB HYDROCHLORIDE
     Dosage: 200 MG, BID
     Route: 048
  5. WARFARIN [Concomitant]
     Active Substance: WARFARIN
     Indication: PRODUCT USED FOR UNKNOWN INDICATION
     Route: 065
  6. VOTRIENT [Suspect]
     Active Substance: PAZOPANIB HYDROCHLORIDE
     Indication: PRODUCT USED FOR UNKNOWN INDICATION
     Dosage: 200 MG, QD
     Route: 048
     Dates: start: 201704
  7. VOTRIENT [Suspect]
     Active Substance: PAZOPANIB HYDROCHLORIDE
     Dosage: 200 MG, TID
     Route: 048
  8. OMEPRAZOLE. [Concomitant]
     Active Substance: OMEPRAZOLE
     Indication: PRODUCT USED FOR UNKNOWN INDICATION
     Route: 065

REACTIONS (17)
  - Pulmonary function test abnormal [Unknown]
  - Asthenia [Unknown]
  - Abdominal pain upper [Unknown]
  - Pruritus [Unknown]
  - Pallor [Unknown]
  - Proteinuria [Unknown]
  - Asthma [Unknown]
  - Mobility decreased [Unknown]
  - Rash [Not Recovered/Not Resolved]
  - Chromaturia [Unknown]
  - Fatigue [Unknown]
  - Protein total increased [Unknown]
  - Anxiety [Not Recovered/Not Resolved]
  - Thrombosis [Unknown]
  - Erythema [Unknown]
  - Swelling [Unknown]
  - Malaise [Unknown]
